FAERS Safety Report 15238586 (Version 1)
Quarter: 2018Q3

REPORT INFORMATION
  Report Type: Report from Study
  Country: FR (occurrence: FR)
  Receive Date: 20180803
  Receipt Date: 20180803
  Transmission Date: 20181010
  Serious: Yes (Hospitalization, Other)
  Sender: FDA-Public Use
  Company Number: FR-TEVA-2018-FR-933505

PATIENT
  Sex: Male

DRUGS (45)
  1. ADRIAMYCIN [Suspect]
     Active Substance: DOXORUBICIN HYDROCHLORIDE
     Indication: ACUTE LYMPHOCYTIC LEUKAEMIA
     Route: 042
     Dates: start: 20171103, end: 20171117
  2. PLITICAN [Concomitant]
     Active Substance: ALIZAPRIDE HYDROCHLORIDE
     Indication: NAUSEA
  3. ORBENINE [Concomitant]
     Active Substance: CLOXACILLIN SODIUM
     Indication: PRODUCT USED FOR UNKNOWN INDICATION
  4. ALBUMIN [Concomitant]
     Active Substance: ALBUMIN HUMAN
     Indication: HYPOALBUMINAEMIA
  5. INEXIUM                            /01479302/ [Concomitant]
     Active Substance: ESOMEPRAZOLE MAGNESIUM
     Indication: OESOPHAGITIS
  6. HYDROCORTISONE. [Suspect]
     Active Substance: HYDROCORTISONE
     Indication: ACUTE LYMPHOCYTIC LEUKAEMIA
     Dosage: 35 MG, UNK
     Route: 037
     Dates: start: 20171206, end: 20171208
  7. MYCAMINE [Concomitant]
     Active Substance: MICAFUNGIN SODIUM
     Indication: ANTI-INFECTIVE THERAPY
  8. MESNA. [Concomitant]
     Active Substance: MESNA
     Indication: URINARY BLADDER HAEMORRHAGE
  9. MEROPENEM. [Concomitant]
     Active Substance: MEROPENEM
     Indication: ANTI-INFECTIVE THERAPY
  10. VANDA [Concomitant]
     Active Substance: CYANOCOBALAMIN\PYRIDOXAMINE HYDROCHLORIDE\THIAMINE HYDROCHLORIDE
     Indication: PRODUCT USED FOR UNKNOWN INDICATION
  11. MORPHINE [Concomitant]
     Active Substance: MORPHINE
     Indication: PAIN
  12. TARGOCID [Concomitant]
     Active Substance: TEICOPLANIN
     Indication: ANTI-INFECTIVE THERAPY
  13. GENTAMICIN. [Concomitant]
     Active Substance: GENTAMICIN
     Indication: FEBRILE NEUTROPENIA
  14. PEGASPARGASE [Suspect]
     Active Substance: PEGASPARGASE
     Indication: ACUTE LYMPHOCYTIC LEUKAEMIA
     Route: 065
     Dates: start: 20171106, end: 20171219
  15. TIENAM [Concomitant]
     Active Substance: CILASTATIN SODIUM\IMIPENEM
     Indication: ANTI-INFECTIVE THERAPY
  16. LASILIX                            /00032601/ [Concomitant]
     Active Substance: FUROSEMIDE
     Indication: DIURETIC THERAPY
  17. VINCRISTINE [Suspect]
     Active Substance: VINCRISTINE
     Indication: ACUTE LYMPHOCYTIC LEUKAEMIA
     Route: 042
     Dates: start: 20171103
  18. NALBUPHINE [Concomitant]
     Active Substance: NALBUPHINE
     Indication: PROCEDURAL PAIN
  19. BACTRIM [Concomitant]
     Active Substance: SULFAMETHOXAZOLE\TRIMETHOPRIM
     Indication: ANTIFUNGAL PROPHYLAXIS
  20. HYDROCORTISONE. [Concomitant]
     Active Substance: HYDROCORTISONE
     Indication: ALLERGY PROPHYLAXIS
  21. CLAIRYG [Concomitant]
     Active Substance: HUMAN IMMUNOGLOBULIN G
     Indication: HYPOGAMMAGLOBULINAEMIA
  22. LINEZOLID. [Concomitant]
     Active Substance: LINEZOLID
     Indication: PRODUCT USED FOR UNKNOWN INDICATION
  23. DEXAMETHASONE. [Suspect]
     Active Substance: DEXAMETHASONE
     Indication: ACUTE LYMPHOCYTIC LEUKAEMIA
     Route: 048
     Dates: start: 20171103, end: 20171123
  24. FASTURTEC [Concomitant]
     Active Substance: RASBURICASE
     Indication: TUMOUR LYSIS SYNDROME
  25. VANCOMYCIN [Concomitant]
     Active Substance: VANCOMYCIN
     Indication: ANTI-INFECTIVE THERAPY
  26. KETAMINE [Concomitant]
     Active Substance: KETAMINE
     Indication: ANAESTHESIA
  27. SPASFON                            /00765801/ [Concomitant]
     Active Substance: PHLOROGLUCINOL\1,3,5-TRIMETHOXYBENZENE
     Indication: ABDOMINAL PAIN
  28. ZOPHREN                            /00955301/ [Concomitant]
     Active Substance: ONDANSETRON
     Indication: NAUSEA
  29. AMBISOME [Concomitant]
     Active Substance: AMPHOTERICIN B
     Indication: ANTIFUNGAL TREATMENT
  30. CYTARABINE. [Suspect]
     Active Substance: CYTARABINE
     Indication: ACUTE LYMPHOCYTIC LEUKAEMIA
     Route: 037
     Dates: start: 20171106, end: 20171208
  31. 6?MERCAPTOPURINE MONOHYDRATE [Suspect]
     Active Substance: MERCAPTOPURINE
     Indication: ACUTE LYMPHOCYTIC LEUKAEMIA
     Route: 048
     Dates: start: 20171218
  32. POLARAMINE [Concomitant]
     Active Substance: DEXCHLORPHENIRAMINE MALEATE
     Indication: ALLERGY PROPHYLAXIS
  33. VANCOMYCIN [Concomitant]
     Active Substance: VANCOMYCIN
     Indication: CLOSTRIDIUM DIFFICILE COLITIS
  34. HYDROXYZINE [Concomitant]
     Active Substance: HYDROXYZINE HYDROCHLORIDE
     Indication: ANXIETY
  35. TAZOCILLINE [Concomitant]
     Active Substance: PIPERACILLIN SODIUM\TAZOBACTAM SODIUM
     Indication: ANTI-INFECTIVE THERAPY
     Dosage: UNK
  36. GRANOCYTE [Concomitant]
     Active Substance: LENOGRASTIM
     Indication: NEUTROPENIA
  37. DEXPANTHENOL. [Concomitant]
     Active Substance: DEXPANTHENOL
     Indication: DERMATITIS DIAPER
  38. METHOTREXATE. [Suspect]
     Active Substance: METHOTREXATE
     Indication: ACUTE LYMPHOCYTIC LEUKAEMIA
     Route: 037
     Dates: start: 20171106, end: 20171208
  39. PERFALGAN [Concomitant]
     Active Substance: ACETAMINOPHEN
     Indication: PAIN
  40. ACLOTINE [Concomitant]
     Active Substance: ANTITHROMBIN III HUMAN
     Indication: COAGULOPATHY
  41. NUBAIN [Concomitant]
     Active Substance: NALBUPHINE HYDROCHLORIDE
     Indication: PAIN
  42. AMIKACIN. [Concomitant]
     Active Substance: AMIKACIN
     Indication: FEBRILE NEUTROPENIA
  43. FLAGYL [Concomitant]
     Active Substance: METRONIDAZOLE\METRONIDAZOLE HYDROCHLORIDE
     Indication: DIARRHOEA
  44. TIORFAN [Concomitant]
     Active Substance: RACECADOTRIL
     Indication: DIARRHOEA
  45. CANCIDAS [Concomitant]
     Active Substance: CASPOFUNGIN ACETATE
     Indication: FEBRILE NEUTROPENIA

REACTIONS (2)
  - Staphylococcal infection [Recovered/Resolved]
  - Febrile neutropenia [Recovered/Resolved]

NARRATIVE: CASE EVENT DATE: 20171127
